FAERS Safety Report 4664427-5 (Version None)
Quarter: 2005Q2

REPORT INFORMATION
  Report Type: 
  Country: None (occurrence: None)
  Receive Date: 20050516
  Receipt Date: 20050516
  Transmission Date: 20051028
  Serious: Yes (Other)
  Sender: FDA-Public Use
  Company Number: None

PATIENT
  Age: 56 Year
  Sex: Male
  Weight: 90 kg

DRUGS (1)
  1. ATORVASTATIN 80MG [Suspect]
     Indication: HYPERLIPIDAEMIA
     Dosage: 80MG DAILY
     Dates: start: 20030123, end: 20040630

REACTIONS (1)
  - MYALGIA [None]
